FAERS Safety Report 15115682 (Version 3)
Quarter: 2019Q2

REPORT INFORMATION
  Report Type: Report from Study
  Country: NL (occurrence: NL)
  Receive Date: 20180706
  Receipt Date: 20190531
  Transmission Date: 20190711
  Serious: Yes (Other)
  Sender: FDA-Public Use
  Company Number: NL-TEVA-2018-NL-920648

PATIENT
  Age: 76 Year
  Sex: Female

DRUGS (3)
  1. LENALIDOMIDE [Suspect]
     Active Substance: LENALIDOMIDE
     Indication: PRODUCT USED FOR UNKNOWN INDICATION
     Dosage: 20 MG, CYCLIC (TOTAL DAILY DOSE)
     Route: 065
     Dates: start: 20180216, end: 20180529
  2. BENDAMUSTINE HYDROCHLORIDE. [Suspect]
     Active Substance: BENDAMUSTINE HYDROCHLORIDE
     Indication: PRODUCT USED FOR UNKNOWN INDICATION
     Dosage: 164 MG, CYCLIC (TOTAL DAILY DOSE)
     Route: 042
     Dates: start: 20180214, end: 20180515
  3. RITUXIMAB. [Suspect]
     Active Substance: RITUXIMAB
     Indication: PRODUCT USED FOR UNKNOWN INDICATION
     Dosage: 682 MG, CYCLIC (TOTAL DAILY DOSE)
     Route: 065
     Dates: start: 20180214, end: 20180515

REACTIONS (1)
  - Head titubation [Recovered/Resolved]

NARRATIVE: CASE EVENT DATE: 20180530
